FAERS Safety Report 8897523 (Version 2)
Quarter: 2012Q4

REPORT INFORMATION
  Report Type: 
  Country: DE (occurrence: None)
  Receive Date: 20121106
  Receipt Date: 20121121
  Transmission Date: 20130627
  Serious: Yes (Death)
  Sender: FDA-Public Use
  Company Number: DSM-2012-01209

PATIENT
  Age: 82 Year
  Sex: Female
  Weight: 86 kg

DRUGS (6)
  1. SEVIKAR HCT [Suspect]
     Indication: ESSENTIAL HYPERTENSION
     Dosage: (1 in 1 D)
     Route: 048
     Dates: start: 20110902
  2. ACE INHIBITOR (ACE INHIBITOR NOS) [Concomitant]
  3. BETA BLOCKING AGENTS [Concomitant]
  4. SERUM LIPID REDUCING AGENTS [Concomitant]
  5. ANTICOAGULANT (ANTITHROMBOTIC AGENTS) [Concomitant]
  6. ACETYLSALICYLIC ACID [Concomitant]

REACTIONS (2)
  - Hypertensive crisis [None]
  - Cerebrovascular accident [None]
